FAERS Safety Report 10738659 (Version 1)
Quarter: 2015Q1

REPORT INFORMATION
  Report Type: Spontaneous
  Country: US (occurrence: US)
  Receive Date: 20150126
  Receipt Date: 20150126
  Transmission Date: 20150721
  Serious: Yes (Hospitalization)
  Sender: FDA-Public Use
  Company Number: US-TEVA-535865USA

PATIENT
  Sex: Female

DRUGS (12)
  1. MINOXIDIL. [Suspect]
     Active Substance: MINOXIDIL
     Indication: HYPERTENSION NEONATAL
     Dosage: 0.6MG/KG/DAY
     Route: 048
  2. CLONIDINE. [Concomitant]
     Active Substance: CLONIDINE
     Indication: HYPERTENSION NEONATAL
     Route: 065
  3. FUROSEMIDE. [Concomitant]
     Active Substance: FUROSEMIDE
     Indication: HYPERTENSION NEONATAL
     Route: 042
  4. MINOXIDIL. [Suspect]
     Active Substance: MINOXIDIL
     Indication: HYPERTENSION NEONATAL
     Dosage: 0.15MG/KG/DAY AND THE DOSE INCREASED OVER 5D TO 0.6MG/KG/DAY
     Route: 048
  5. AMLODIPINE [Concomitant]
     Active Substance: AMLODIPINE BESYLATE
     Indication: HYPERTENSION NEONATAL
     Route: 048
  6. CLONIDINE. [Concomitant]
     Active Substance: CLONIDINE
     Indication: HYPERTENSION NEONATAL
     Route: 048
  7. CAPTOPRIL. [Suspect]
     Active Substance: CAPTOPRIL
     Indication: HYPERTENSION NEONATAL
     Route: 065
  8. PROPRANOLOL [Concomitant]
     Active Substance: PROPRANOLOL\PROPRANOLOL HYDROCHLORIDE
     Indication: HYPERTENSION NEONATAL
     Route: 065
  9. LABETALOL [Concomitant]
     Active Substance: LABETALOL\LABETALOL HYDROCHLORIDE
     Indication: HYPERTENSION NEONATAL
     Route: 042
  10. AMLODIPINE [Concomitant]
     Active Substance: AMLODIPINE BESYLATE
     Indication: HYPERTENSION NEONATAL
     Route: 048
  11. SODIUM NITROPRUSSIDE [Concomitant]
     Active Substance: SODIUM NITROPRUSSIDE
     Indication: HYPERTENSION NEONATAL
     Route: 042
  12. ENALAPRIL [Concomitant]
     Active Substance: ENALAPRIL
     Indication: HYPERTENSION NEONATAL
     Route: 048

REACTIONS (3)
  - Oliguria [Unknown]
  - Decreased appetite [Recovered/Resolved]
  - Fluid retention [Unknown]
